FAERS Safety Report 5726121-9 (Version None)
Quarter: 2008Q2

REPORT INFORMATION
  Report Type: 
  Country: None (occurrence: None)
  Receive Date: 20080501
  Receipt Date: 20080501
  Transmission Date: 20081010
  Serious: No
  Sender: FDA-Public Use
  Company Number: None

PATIENT
  Sex: Female
  Weight: 61.2356 kg

DRUGS (1)
  1. DIGOXIN [Suspect]
     Indication: CARDIAC DISORDER
     Dosage: ONE TABLET ONCE A DAY PO
     Route: 048
     Dates: start: 20020201, end: 20080424

REACTIONS (8)
  - BLOOD POTASSIUM DECREASED [None]
  - DEHYDRATION [None]
  - DRUG LEVEL INCREASED [None]
  - GASTRIC DISORDER [None]
  - MALAISE [None]
  - ORAL INTAKE REDUCED [None]
  - PHARMACEUTICAL PRODUCT COMPLAINT [None]
  - VOMITING [None]
